FAERS Safety Report 8198874-4 (Version None)
Quarter: 2012Q1

REPORT INFORMATION
  Report Type: 
  Country: None (occurrence: None)
  Receive Date: 20120309
  Receipt Date: 20120221
  Transmission Date: 20120608
  Serious: No
  Sender: FDA-Public Use
  Company Number: US-AMGEN-USASP2012009129

PATIENT
  Age: 91 Year
  Sex: Female

DRUGS (7)
  1. ASPIRIN [Concomitant]
     Dosage: 2 MG, QD
     Route: 048
     Dates: start: 20120101
  2. LEXAPRO [Concomitant]
     Dosage: UNK
     Route: 048
  3. MIRAPEX [Concomitant]
     Dosage: UNK
  4. CALCIUM [Concomitant]
     Dosage: UNK
  5. COUMADIN [Concomitant]
     Dosage: UNK
     Dates: start: 20120101, end: 20120101
  6. PROLIA [Suspect]
     Indication: OSTEOPOROSIS POSTMENOPAUSAL
     Dosage: 60 MG, Q6MO
     Route: 058
     Dates: start: 20100101
  7. VITAMIN D [Concomitant]
     Dosage: UNK
     Route: 048

REACTIONS (6)
  - POST PROCEDURAL INFECTION [None]
  - POST PROCEDURAL COMPLICATION [None]
  - PHLEBITIS [None]
  - TOOTH EXTRACTION [None]
  - TOOTH DISORDER [None]
  - CONTUSION [None]
